FAERS Safety Report 9941956 (Version 1)
Quarter: 2014Q1

REPORT INFORMATION
  Report Type: Report from Study
  Country: US (occurrence: US)
  Receive Date: 20140303
  Receipt Date: 20140303
  Transmission Date: 20141002
  Serious: No
  Sender: FDA-Public Use
  Company Number: US-ABBVIE-13P-163-1041003-00

PATIENT
  Age: 41 Year
  Sex: Male

DRUGS (9)
  1. HUMIRA [Suspect]
     Indication: CROHN^S DISEASE
     Dosage: LOADING DOSE
     Route: 058
     Dates: start: 20130117, end: 20130117
  2. HUMIRA [Suspect]
  3. NAPROXEN [Concomitant]
     Indication: BACK PAIN
     Dosage: 500 MG 2/DAY
  4. VITAMIN B12 [Concomitant]
     Indication: PRODUCT USED FOR UNKNOWN INDICATION
     Dosage: WEEKLY X/8 WEEKS
  5. VITAMIN B12 [Concomitant]
     Dosage: 1X/MONTH
  6. VITAMIN B [Concomitant]
     Indication: HYPOVITAMINOSIS
     Dosage: 1/DAY
  7. HEPATITIS B VACCINE [Concomitant]
     Indication: PRODUCT USED FOR UNKNOWN INDICATION
     Dosage: SERIES OF THREE
  8. HEPATITIS B VACCINE [Concomitant]
     Dosage: SERIES OF THREE
  9. HEPATITIS B VACCINE [Concomitant]
     Dosage: SERIES OF THREE

REACTIONS (2)
  - Gait disturbance [Not Recovered/Not Resolved]
  - Arthralgia [Not Recovered/Not Resolved]
